FAERS Safety Report 23429617 (Version 1)
Quarter: 2024Q1

REPORT INFORMATION
  Report Type: Spontaneous
  Country: JP (occurrence: JP)
  Receive Date: 20240122
  Receipt Date: 20240122
  Transmission Date: 20240409
  Serious: Yes (Hospitalization)
  Sender: FDA-Public Use
  Company Number: JP-PFIZER INC-202300454136

PATIENT
  Age: 85 Year
  Sex: Male
  Weight: 59.1 kg

DRUGS (8)
  1. METRONIDAZOLE [Suspect]
     Active Substance: METRONIDAZOLE
     Indication: Enteritis infectious
     Dosage: 500 MG, 3X/DAY
     Route: 041
     Dates: start: 20231220, end: 20231229
  2. PIPERACILLIN SODIUM\TAZOBACTAM SODIUM [Concomitant]
     Active Substance: PIPERACILLIN SODIUM\TAZOBACTAM SODIUM
     Dosage: 4.5 G, 3X/DAY
     Route: 041
     Dates: start: 20231203
  3. TEICOPLANIN [Concomitant]
     Active Substance: TEICOPLANIN
     Dosage: 600 MG, 2X/DAY
     Route: 041
     Dates: start: 20231213, end: 20231213
  4. TEICOPLANIN [Concomitant]
     Active Substance: TEICOPLANIN
     Dosage: 600 MG, 1X/DAY
     Route: 041
     Dates: start: 20231214, end: 20231215
  5. TEICOPLANIN [Concomitant]
     Active Substance: TEICOPLANIN
     Dosage: 200 MG, 1X/DAY
     Route: 041
     Dates: start: 20231216, end: 20231217
  6. TEICOPLANIN [Concomitant]
     Active Substance: TEICOPLANIN
     Dosage: 300 MG, 1X/DAY
     Route: 041
     Dates: start: 20231218, end: 20231222
  7. TEICOPLANIN [Concomitant]
     Active Substance: TEICOPLANIN
     Dosage: 400 MG, 1X/DAY
     Route: 041
     Dates: start: 20231223
  8. MICAFUNGIN [Concomitant]
     Active Substance: MICAFUNGIN SODIUM
     Dosage: 100 MG, 1X/DAY
     Route: 041
     Dates: start: 20231213

REACTIONS (2)
  - Platelet count decreased [Not Recovered/Not Resolved]
  - Haemorrhage [Unknown]

NARRATIVE: CASE EVENT DATE: 20231223
